FAERS Safety Report 21207057 (Version 1)
Quarter: 2022Q3

REPORT INFORMATION
  Report Type: Spontaneous
  Country: CN (occurrence: CN)
  Receive Date: 20220812
  Receipt Date: 20220812
  Transmission Date: 20221027
  Serious: Yes (Hospitalization)
  Sender: FDA-Public Use
  Company Number: CN-BAYER-2022A112203

PATIENT
  Age: 64 Year
  Sex: Male

DRUGS (17)
  1. STIVARGA [Suspect]
     Active Substance: REGORAFENIB
     Indication: Hepatocellular carcinoma
     Dosage: 120 MG, QD
     Route: 048
     Dates: start: 20210705
  2. PIRARUBICIN [Concomitant]
     Active Substance: PIRARUBICIN
     Indication: Hepatic cancer
     Dosage: UNK
     Route: 013
     Dates: start: 202101, end: 202101
  3. PIRARUBICIN [Concomitant]
     Active Substance: PIRARUBICIN
     Indication: Hepatic cancer
     Dosage: UNK
     Dates: start: 202103, end: 202103
  4. PIRARUBICIN [Concomitant]
     Active Substance: PIRARUBICIN
     Indication: Hepatic cancer
     Dosage: UNK
     Dates: start: 202105, end: 202105
  5. PIRARUBICIN [Concomitant]
     Active Substance: PIRARUBICIN
     Indication: Hepatic cancer
     Dosage: UNK
     Route: 013
     Dates: start: 20210705, end: 20210705
  6. PIRARUBICIN [Concomitant]
     Active Substance: PIRARUBICIN
     Indication: Hepatic cancer
     Dosage: UNK
     Route: 013
     Dates: start: 20210924, end: 20210924
  7. FLUOROURACIL [Concomitant]
     Active Substance: FLUOROURACIL
     Indication: Hepatic cancer
     Dosage: UNK
     Route: 013
     Dates: start: 202101, end: 202101
  8. FLUOROURACIL [Concomitant]
     Active Substance: FLUOROURACIL
     Indication: Hepatic cancer
     Dosage: UNK
     Route: 013
     Dates: start: 202103, end: 202103
  9. FLUOROURACIL [Concomitant]
     Active Substance: FLUOROURACIL
     Indication: Hepatic cancer
     Dosage: UNK
     Route: 013
     Dates: start: 202105, end: 202105
  10. FLUOROURACIL [Concomitant]
     Active Substance: FLUOROURACIL
     Indication: Hepatic cancer
     Dosage: UNK
     Route: 013
     Dates: start: 20210705, end: 20210705
  11. FLUOROURACIL [Concomitant]
     Active Substance: FLUOROURACIL
     Indication: Hepatic cancer
     Dosage: UNK
     Route: 013
     Dates: start: 20210924, end: 20210924
  12. OXALIPLATIN [Concomitant]
     Active Substance: OXALIPLATIN
     Indication: Hepatic cancer
     Dosage: UNK
     Route: 013
     Dates: start: 202101, end: 202101
  13. OXALIPLATIN [Concomitant]
     Active Substance: OXALIPLATIN
     Indication: Hepatic cancer
     Dosage: UNK
     Route: 013
     Dates: start: 202103, end: 202103
  14. OXALIPLATIN [Concomitant]
     Active Substance: OXALIPLATIN
     Indication: Hepatic cancer
     Dosage: UNK
     Route: 013
     Dates: start: 202105, end: 202105
  15. OXALIPLATIN [Concomitant]
     Active Substance: OXALIPLATIN
     Indication: Hepatic cancer
     Dosage: UNK
     Route: 013
     Dates: start: 20210705, end: 20210705
  16. OXALIPLATIN [Concomitant]
     Active Substance: OXALIPLATIN
     Indication: Hepatic cancer
     Dosage: UNK
     Route: 013
     Dates: start: 20210924, end: 20210924
  17. APATINIB [Concomitant]
     Active Substance: APATINIB
     Dosage: UNK
     Dates: start: 202105, end: 202105

REACTIONS (4)
  - Hepatic cancer recurrent [None]
  - Metastasis [None]
  - Metastasis [None]
  - Off label use [None]

NARRATIVE: CASE EVENT DATE: 20210705
